FAERS Safety Report 8953521 (Version 2)
Quarter: 2012Q4

REPORT INFORMATION
  Report Type: 
  Country: JP (occurrence: JP)
  Receive Date: 20121206
  Receipt Date: 20121228
  Transmission Date: 20130627
  Serious: Yes (Other)
  Sender: FDA-Public Use
  Company Number: JP-ASTRAZENECA-2012SE90534

PATIENT
  Age: 90 Year
  Sex: Female

DRUGS (4)
  1. NEXIUM [Suspect]
     Indication: GASTROOESOPHAGEAL REFLUX DISEASE
     Route: 048
     Dates: start: 20121101, end: 20121122
  2. HERBALS [Suspect]
     Route: 048
  3. UNSPECIFIED [Suspect]
     Route: 065
  4. ALDACTONE A [Concomitant]

REACTIONS (1)
  - Pneumonia [Recovered/Resolved]
